FAERS Safety Report 8219105-2 (Version None)
Quarter: 2012Q1

REPORT INFORMATION
  Report Type: 
  Country: None (occurrence: None)
  Receive Date: 20120319
  Receipt Date: 20120309
  Transmission Date: 20120608
  Serious: Yes (Hospitalization, Other)
  Sender: FDA-Public Use
  Company Number: US-ACTELION-A-US2012-61692

PATIENT

DRUGS (1)
  1. TRACLEER [Suspect]
     Indication: PULMONARY ARTERIAL HYPERTENSION
     Dosage: 62.5 MG, BID
     Route: 048
     Dates: start: 20120201

REACTIONS (9)
  - CONDITION AGGRAVATED [None]
  - INCREASED UPPER AIRWAY SECRETION [None]
  - RHINORRHOEA [None]
  - HEART RATE INCREASED [None]
  - DYSPNOEA [None]
  - HEADACHE [None]
  - RESPIRATORY TRACT CONGESTION [None]
  - OXYGEN SATURATION DECREASED [None]
  - NASAL CONGESTION [None]
